FAERS Safety Report 6875225-6 (Version None)
Quarter: 2010Q2

REPORT INFORMATION
  Report Type: 
  Country: None (occurrence: None)
  Receive Date: 20100616
  Receipt Date: 20071218
  Transmission Date: 20101027
  Serious: Yes (Hospitalization)
  Sender: FDA-Public Use
  Company Number: S07-USA-06377-01

PATIENT

DRUGS (1)
  1. NAMENDA [Suspect]
     Dosage: (ONCE A DAY), ORAL
     Route: 048

REACTIONS (1)
  - BLOOD SODIUM DECREASED [None]
